FAERS Safety Report 17198086 (Version 1)
Quarter: 2019Q4

REPORT INFORMATION
  Report Type: Spontaneous
  Country: BE (occurrence: BE)
  Receive Date: 20191225
  Receipt Date: 20191225
  Transmission Date: 20200122
  Serious: Yes (Other)
  Sender: FDA-Public Use
  Company Number: BE-ABBVIE-19K-013-3195460-00

PATIENT
  Age: 64 Year
  Sex: Male

DRUGS (1)
  1. ANDROGEL [Suspect]
     Active Substance: TESTOSTERONE
     Indication: HYPOGONADISM
     Dosage: 1 PUMP ACTUATION /DAY
     Route: 061
     Dates: start: 201811

REACTIONS (1)
  - Prostatic dysplasia [Unknown]

NARRATIVE: CASE EVENT DATE: 201812
